FAERS Safety Report 9539007 (Version 3)
Quarter: 2013Q4

REPORT INFORMATION
  Report Type: Spontaneous
  Country: US (occurrence: US)
  Receive Date: 20130920
  Receipt Date: 20131015
  Transmission Date: 20140711
  Serious: Yes (Hospitalization, Other)
  Sender: FDA-Public Use
  Company Number: US-JNJFOC-20130908390

PATIENT
  Age: 4 Decade
  Sex: Female

DRUGS (1)
  1. NUCYNTA IR [Suspect]
     Indication: PRODUCT USED FOR UNKNOWN INDICATION
     Route: 065

REACTIONS (3)
  - Drug abuse [Recovered/Resolved]
  - Drug diversion [Recovered/Resolved]
  - Adverse event [Unknown]
